FAERS Safety Report 20346807 (Version 1)
Quarter: 2022Q1

REPORT INFORMATION
  Report Type: Spontaneous
  Country: US (occurrence: US)
  Receive Date: 20220118
  Receipt Date: 20220118
  Transmission Date: 20220423
  Serious: No
  Sender: FDA-Public Use
  Company Number: US-PFIZER INC-202200063618

PATIENT
  Age: 42 Year
  Sex: Female

DRUGS (1)
  1. PAXLOVID [Suspect]
     Active Substance: NIRMATRELVIR\RITONAVIR
     Indication: COVID-19
     Dosage: UNK
     Dates: start: 20220111

REACTIONS (10)
  - Stress [Unknown]
  - Faeces discoloured [Unknown]
  - Asthenia [Unknown]
  - Fatigue [Unknown]
  - Dysgeusia [Unknown]
  - Eye infection [Unknown]
  - Anxiety [Unknown]
  - Palpitations [Unknown]
  - Cold sweat [Unknown]
  - Malaise [Unknown]

NARRATIVE: CASE EVENT DATE: 20220101
